FAERS Safety Report 4344914-X (Version None)
Quarter: 2004Q2

REPORT INFORMATION
  Report Type: 
  Country: None (occurrence: None)
  Receive Date: 20040420
  Receipt Date: 20040406
  Transmission Date: 20050107
  Serious: Yes (Hospitalization)
  Sender: FDA-Public Use
  Company Number: US-JNJFOC-20040401248

PATIENT
  Age: 78 Year
  Sex: Male

DRUGS (14)
  1. INFLIXIMAB (INFLIXIMAB, RECOMBINANT) LYOPHILIZED POWDER [Suspect]
     Indication: RHEUMATOID ARTHRITIS
     Dosage: INTRAVENOUS
     Route: 042
     Dates: start: 20010411
  2. ASPIRIN [Concomitant]
  3. COUMADIN [Suspect]
  4. AVANDIA [Concomitant]
  5. IRON (IRON) [Concomitant]
  6. LOPRESSOR [Concomitant]
  7. IMURAN [Concomitant]
  8. PREDNISONE [Concomitant]
  9. FLOMAX [Concomitant]
  10. FUROSEMIDE [Concomitant]
  11. LORTAB [Concomitant]
  12. MIACALCIN [Concomitant]
  13. OXYGEN THERAPY (OXYGEN) [Concomitant]
  14. MULTIVITAMIN [Concomitant]

REACTIONS (5)
  - AORTIC ANEURYSM [None]
  - GASTROINTESTINAL HAEMORRHAGE [None]
  - HAEMATOCRIT DECREASED [None]
  - PEPTIC ULCER [None]
  - PULMONARY OEDEMA [None]
